FAERS Safety Report 5143865-0 (Version None)
Quarter: 2006Q4

REPORT INFORMATION
  Report Type: 
  Country: None (occurrence: None)
  Receive Date: 20061102
  Receipt Date: 20061102
  Transmission Date: 20070319
  Serious: No
  Sender: FDA-Public Use
  Company Number: None

PATIENT
  Sex: Female
  Weight: 63.9572 kg

DRUGS (1)
  1. ACEBUTOLOL [Suspect]
     Indication: HYPERTENSION
     Dosage: 400 MG 1 Q DAY ORAL
     Route: 048
     Dates: start: 20060103, end: 20060109

REACTIONS (1)
  - PAIN IN EXTREMITY [None]
